FAERS Safety Report 4895791-X (Version None)
Quarter: 2005Q4

REPORT INFORMATION
  Report Type: 
  Country: None (occurrence: None)
  Receive Date: 20051230
  Receipt Date: 20051209
  Transmission Date: 20060501
  Serious: Yes (Other)
  Sender: FDA-Public Use
  Company Number: 2005BH002402

PATIENT
  Age: 15 Year
  Sex: Male
  Weight: 55 kg

DRUGS (3)
  1. GAMMAGARD S/D [Suspect]
     Indication: HYPOGAMMAGLOBULINAEMIA
     Dosage: 7.5 GM;EVERY DAY;IVDRI
     Route: 041
     Dates: start: 20051015, end: 20051015
  2. SOLU-CORTEF [Concomitant]
  3. SOLITA T [Concomitant]

REACTIONS (2)
  - PRURITUS [None]
  - URTICARIA [None]
